FAERS Safety Report 6134930-X (Version None)
Quarter: 2009Q1

REPORT INFORMATION
  Report Type: 
  Country: None (occurrence: None)
  Receive Date: 20090327
  Receipt Date: 20090319
  Transmission Date: 20090719
  Serious: Yes (Hospitalization)
  Sender: FDA-Public Use
  Company Number: FR-WATSON-2009-01879

PATIENT
  Sex: Female

DRUGS (9)
  1. TRELSTAR LA [Suspect]
     Indication: DRUG USE FOR UNKNOWN INDICATION
     Dosage: 11.25 MG, 1 IN 3 M
     Route: 030
     Dates: start: 20060101
  2. DEROXAT [Suspect]
     Indication: DRUG USE FOR UNKNOWN INDICATION
     Dosage: 20 MG, 1 IN 1 D
     Route: 048
     Dates: start: 20090101
  3. DEROXAT [Suspect]
     Dosage: 40 MG,
     Route: 048
     Dates: start: 20071001, end: 20090101
  4. ABUFENE [Suspect]
     Indication: DRUG USE FOR UNKNOWN INDICATION
     Dosage: UNK (1 IN 3 M)
     Route: 048
     Dates: start: 20060101
  5. CELESTENE                          /00008501/ [Suspect]
     Indication: DRUG USE FOR UNKNOWN INDICATION
     Dosage: UNK (INHALATION)
     Route: 055
     Dates: start: 20090121, end: 20090129
  6. NETROMYCIN [Suspect]
     Indication: DRUG USE FOR UNKNOWN INDICATION
     Dosage: UNK, SINGLE
     Route: 055
     Dates: start: 20090121, end: 20090121
  7. SURBRONC [Suspect]
     Indication: DRUG USE FOR UNKNOWN INDICATION
     Dosage: UNK, SINGLE
     Route: 055
     Dates: start: 20090121, end: 20090121
  8. GOMENOL [Suspect]
     Indication: DRUG USE FOR UNKNOWN INDICATION
     Dosage: UNK
     Route: 065
     Dates: start: 20090121, end: 20090129
  9. LEXOMIL [Concomitant]
     Indication: DRUG USE FOR UNKNOWN INDICATION
     Dosage: UNK
     Route: 065

REACTIONS (4)
  - CELL DEATH [None]
  - MEGAKARYOCYTES ABNORMAL [None]
  - MEGAKARYOCYTES DECREASED [None]
  - THROMBOCYTOPENIA [None]
